FAERS Safety Report 6316404-6 (Version None)
Quarter: 2009Q3

REPORT INFORMATION
  Report Type: 
  Country: None (occurrence: None)
  Receive Date: 20090820
  Receipt Date: 20090814
  Transmission Date: 20100115
  Serious: Yes (Hospitalization)
  Sender: FDA-Public Use
  Company Number: B0589371A

PATIENT
  Age: 12 Year
  Sex: Male

DRUGS (1)
  1. AUGMENTIN '125' [Suspect]
     Indication: NASOPHARYNGITIS
     Dosage: 1TAB PER DAY
     Route: 048
     Dates: start: 20090811

REACTIONS (6)
  - DIARRHOEA [None]
  - ENANTHEMA [None]
  - PRURITUS GENERALISED [None]
  - PYREXIA [None]
  - RASH [None]
  - VOMITING [None]
